FAERS Safety Report 13983545 (Version 2)
Quarter: 2017Q4

REPORT INFORMATION
  Report Type: Report from Study
  Country: CA (occurrence: CA)
  Receive Date: 20170918
  Receipt Date: 20171017
  Transmission Date: 20180321
  Serious: Yes (Death)
  Sender: FDA-Public Use
  Company Number: CA-TOLMAR, INC.-2017CA012366

PATIENT

DRUGS (22)
  1. FUROSEMIDE. [Concomitant]
     Active Substance: FUROSEMIDE
     Dosage: 1 DF, DAILY
  2. ALLERNIX [Concomitant]
     Indication: PRURITUS
     Dosage: 1 DF, Q6HR
  3. LOPERAMIDE [Concomitant]
     Active Substance: LOPERAMIDE
     Dosage: 0.5 DF, DAILY
  4. COLLAGENASE SANTYL [Concomitant]
     Active Substance: COLLAGENASE CLOSTRIDIUM HISTOLYTICUM
     Dosage: 25U/G, DAILY
  5. ATORVASTATIN [Concomitant]
     Active Substance: ATORVASTATIN
     Dosage: 1 DF, DAILY
  6. ONGLYZA [Concomitant]
     Active Substance: SAXAGLIPTIN HYDROCHLORIDE
     Dosage: 1 DF, DAILY
  7. BRILINTA [Concomitant]
     Active Substance: TICAGRELOR
     Dosage: 1 DF, BID
  8. SALBUTAMOL [Concomitant]
     Active Substance: ALBUTEROL
     Dosage: 2MG/ML, BIC
  9. ELIGARD [Suspect]
     Active Substance: LEUPROLIDE ACETATE
     Indication: PROSTATE CANCER
     Dosage: 45 MG, Q6MONTHS
     Route: 058
     Dates: start: 201605, end: 20170406
  10. INSULIN [Concomitant]
     Active Substance: INSULIN NOS
     Dosage: 34UNITS MORNING AND 16UNITS AT SUPPER
  11. PANTOPRAZOLE [Concomitant]
     Active Substance: PANTOPRAZOLE
     Dosage: 1 DF, DAILY
  12. GLYCERYL TRINITRATE [Concomitant]
     Active Substance: NITROGLYCERIN
     Indication: CHEST PAIN
     Dosage: 0.4MG PUMP, 1 VAPORISATION, EVERY 5 MIN, MAX 3 TIMES/CRISIS
     Route: 060
  13. AAS [Concomitant]
     Active Substance: ASPIRIN
     Dosage: 1 DF, DAILY
  14. TAMSULOSIN CR [Concomitant]
     Active Substance: TAMSULOSIN
     Dosage: 0.4 MG, UNK
  15. ONBREZ [Concomitant]
     Active Substance: INDACATEROL
     Dosage: 75MCG CAPS INH -INHALE THE CONTENT OF 2 CAPSULES, DAILY
  16. DOCUSATE SODIUM. [Concomitant]
     Active Substance: DOCUSATE SODIUM
     Dosage: 1 TO 2 CAPSULES AT BEDTIME
  17. BETADERM                           /00008501/ [Concomitant]
     Indication: SKIN LESION
     Dosage: UNK, BID
  18. AIROMIR                            /00139501/ [Concomitant]
     Active Substance: ALBUTEROL
     Dosage: 4 TIMES/DAY, PRN
  19. NAPROXEN. [Concomitant]
     Active Substance: NAPROXEN
     Dosage: 1 DF, BID
  20. BISOPROLOL [Concomitant]
     Active Substance: BISOPROLOL
     Dosage: 1 DF, DAILY
  21. DUTASTERIDE. [Concomitant]
     Active Substance: DUTASTERIDE
     Dosage: 1 DF, DAILY
  22. SEEBRI [Concomitant]
     Active Substance: GLYCOPYRRONIUM
     Dosage: 50 MCG -INHALE 1/D THE CONTENT OF 1 CAPSULES MORNING

REACTIONS (1)
  - Chronic obstructive pulmonary disease [Fatal]
